FAERS Safety Report 19836186 (Version 1)
Quarter: 2021Q3

REPORT INFORMATION
  Report Type: Spontaneous
  Country: US (occurrence: US)
  Receive Date: 20210914
  Receipt Date: 20210914
  Transmission Date: 20211014
  Serious: No
  Sender: FDA-Public Use
  Company Number: US-SK LIFE SCIENCE, INC.-SKPVG-2021-000814

PATIENT

DRUGS (44)
  1. TRAMADOL. [Concomitant]
     Active Substance: TRAMADOL
     Indication: PRODUCT USED FOR UNKNOWN INDICATION
     Dosage: UNK
     Route: 065
     Dates: start: 20210520, end: 202105
  2. MULTIVITAMIN                       /00097801/ [Concomitant]
     Active Substance: VITAMINS
     Indication: SUPPLEMENTATION THERAPY
     Dosage: 1 TAB, QD, QAM,
     Route: 048
     Dates: start: 20150824
  3. KETOCONAZOLE. [Concomitant]
     Active Substance: KETOCONAZOLE
     Indication: FUNGAL INFECTION
     Dosage: UNK, 1%, BID, PRN
     Route: 061
     Dates: start: 20210517
  4. PEPTO?BISMOL [Concomitant]
     Active Substance: BISMUTH SUBSALICYLATE
     Indication: DIARRHOEA
     Dosage: 60 MILLIGRAM, QHS, PRN
     Route: 048
     Dates: start: 20190520
  5. XCOPRI [Suspect]
     Active Substance: CENOBAMATE
     Dosage: 100 MILLIGRAM, QHS
     Route: 048
     Dates: start: 20210609
  6. ACETAZOLAMIDE. [Concomitant]
     Active Substance: ACETAZOLAMIDE
     Indication: SEIZURE
     Dosage: 250 MILLIGRAM, TID, 1 TABLET, 7AM, 12P, HS
     Route: 048
     Dates: start: 20180322
  7. ASPIRIN                            /00002701/ [Concomitant]
     Active Substance: ASPIRIN
     Indication: DIABETES MELLITUS
     Dosage: 81 MILLIGRAM, QD, 1TABLET
     Route: 048
     Dates: start: 20191014
  8. LISINOPRIL. [Concomitant]
     Active Substance: LISINOPRIL
     Indication: RENAL DISORDER PROPHYLAXIS
     Dosage: 10 MILLIGRAM, QD,1 TABLET
     Route: 048
     Dates: start: 20200820
  9. FLUTICASONE. [Concomitant]
     Active Substance: FLUTICASONE
     Indication: HYPERSENSITIVITY
     Dosage: 50 MCG, QD, PRN, 1 SPRAY EACH NOSTRIL
     Route: 045
     Dates: start: 20180531
  10. XCOPRI [Suspect]
     Active Substance: CENOBAMATE
     Dosage: 150 MILLIGRAM, QHS
     Route: 048
     Dates: start: 20210528
  11. XCOPRI [Suspect]
     Active Substance: CENOBAMATE
     Dosage: 50 MILLIGRAM, QHS
     Route: 048
     Dates: start: 20210626, end: 20210707
  12. SIMVASTATIN. [Concomitant]
     Active Substance: SIMVASTATIN
     Indication: BLOOD CHOLESTEROL INCREASED
     Dosage: 20 MILLIGRAM, QHS, 1 TABLET
     Route: 048
     Dates: start: 20150824
  13. HYDROCORTISONE. [Concomitant]
     Active Substance: HYDROCORTISONE
     Indication: SKIN IRRITATION
     Dosage: UNK, 1% CREAM, BID,PRN
     Route: 061
     Dates: start: 20180502
  14. IBUPROFEN. [Concomitant]
     Active Substance: IBUPROFEN
     Indication: PAIN
     Dosage: 400 MILLIGRAM, Q4H, PRN, 1 TABLET
     Route: 048
     Dates: start: 20180502
  15. NASOGEL [Concomitant]
     Indication: NASAL DRYNESS
     Dosage: UNK, Q4H, PRN,ONE SPRAY Q NOSTRIL
     Route: 045
     Dates: start: 20170510
  16. PEPTO?BISMOL [Concomitant]
     Active Substance: BISMUTH SUBSALICYLATE
     Indication: ABDOMINAL DISCOMFORT
  17. TUMS                               /00193601/ [Concomitant]
     Active Substance: CALCIUM CARBONATE\MAGNESIUM CARBONATE\MAGNESIUM TRISILICATE
     Indication: DYSPEPSIA
     Dosage: 3 TABLETS, WITH MEALS,PRN
     Route: 048
     Dates: start: 20180926
  18. VALTO                              /00372302/ [Concomitant]
     Indication: SEIZURE
     Dosage: 10 MILLIGRAM, PRN, TWICE DAILY, 1 SPRAY EACH NOSTRIL
  19. BANZEL [Concomitant]
     Active Substance: RUFINAMIDE
     Indication: SEIZURE
     Dosage: 400 MILLIGRAM, BID, 2 TABLETS, 7AM, HS
     Route: 048
     Dates: start: 20200810
  20. BRIVIACT [Concomitant]
     Active Substance: BRIVARACETAM
     Indication: SEIZURE
     Dosage: 100 MILLIGRAM, QD, 2 TABLETS
     Route: 048
     Dates: start: 20201218
  21. BRIVIACT [Concomitant]
     Active Substance: BRIVARACETAM
     Dosage: 100 MILLIGRAM, PER PROTOCOL, QD, PRN, 3 TABLETS
     Route: 048
     Dates: start: 20201223
  22. CARVEDILOL. [Concomitant]
     Active Substance: CARVEDILOL
     Indication: HYPERTENSION
     Dosage: 6.25 MILLIGRAM, QD, 7AM, 7PM, 1 TABLET
     Route: 048
     Dates: start: 20180420
  23. FENOFIBRATE. [Concomitant]
     Active Substance: FENOFIBRATE
     Indication: BLOOD CHOLESTEROL INCREASED
     Dosage: 160 MILLIGRAM, QD, 7AM,1 TABLET
     Route: 048
     Dates: start: 20150824
  24. DOCUSATE SODIUM. [Concomitant]
     Active Substance: DOCUSATE SODIUM
     Indication: CONSTIPATION
     Dosage: 100 MILLIGRAM, BID,PRN, LIQUID GEL CAPSULE
     Route: 065
     Dates: start: 20150824
  25. IBUPROFEN. [Concomitant]
     Active Substance: IBUPROFEN
     Indication: BODY TEMPERATURE
  26. MIRALAX [Concomitant]
     Active Substance: POLYETHYLENE GLYCOL 3350
     Indication: CONSTIPATION
     Dosage: 17 GRAM IN WATER, QD, PRN
     Route: 048
     Dates: start: 20180502
  27. MELATONIN [Concomitant]
     Active Substance: MELATONIN
     Indication: INSOMNIA
     Dosage: 3 MILLIGRAM, QHS
     Route: 048
     Dates: start: 20190709
  28. METFORMIN [Concomitant]
     Active Substance: METFORMIN HYDROCHLORIDE
     Indication: DIABETES MELLITUS
     Dosage: 500 MILLIGRAM, BID WITH MEALS, 2 TABLETS.
     Route: 048
     Dates: start: 20151201
  29. DEX4 GLUCOSE [Concomitant]
     Active Substance: DEXTROSE
     Indication: HYPOGLYCAEMIA
     Dosage: 4 GRAM, PRN
     Route: 048
     Dates: start: 20160926
  30. LISTERINE                          /00178701/ [Concomitant]
     Indication: DENTAL DISORDER PROPHYLAXIS
     Dosage: 30 MILLIGRAM AND FLOSS, BID,
     Route: 048
     Dates: start: 20200508
  31. CETIRIZINE HCL [Concomitant]
     Active Substance: CETIRIZINE HYDROCHLORIDE
     Indication: HYPERSENSITIVITY
     Dosage: 10 MILLIGRAM, QD, PRN, 1 TABLET
     Route: 048
     Dates: start: 20190520
  32. MIDAZOLAM. [Concomitant]
     Active Substance: MIDAZOLAM
     Indication: SEIZURE
     Dosage: 5 MILLIGRAM,  PER PROTOCOL, BID, PRN, 1 SPRAY IN NOSTRIL
     Route: 045
     Dates: start: 20200707
  33. EPIDIOLEX [Concomitant]
     Active Substance: CANNABIDIOL
     Indication: LENNOX-GASTAUT SYNDROME
     Dosage: 8.5 MILLIGRAM,BID, I00MG/ML ORAL SOLUTION, 7AM AND HS
     Route: 048
     Dates: start: 20190808
  34. PRILOSEC [Concomitant]
     Active Substance: OMEPRAZOLE MAGNESIUM
     Indication: GASTROOESOPHAGEAL REFLUX DISEASE
     Dosage: 20 MILLIGRAM, QHS, 1 TABLET
     Route: 048
     Dates: start: 20200402
  35. MUCINEX [Concomitant]
     Active Substance: GUAIFENESIN
     Indication: NASAL CONGESTION
     Dosage: 600 MILLIGRAM, BID, PRN, 1 TABLET
     Route: 045
     Dates: start: 20160303
  36. XCOPRI [Suspect]
     Active Substance: CENOBAMATE
     Indication: SEIZURE
     Dosage: 100 MILLIGRAM, QHS (AT BED TIME)
     Route: 048
     Dates: start: 20210513
  37. AMLODIPINE [Concomitant]
     Active Substance: AMLODIPINE BESYLATE
     Indication: HYPERTENSION
     Dosage: 5 MILLIGRAM, QHS, 1 TABLET
     Route: 048
     Dates: start: 20200820
  38. APTIOM [Concomitant]
     Active Substance: ESLICARBAZEPINE ACETATE
     Indication: SEIZURE
     Dosage: 800 MILLIGRAM, QHS, 7AM
     Route: 048
     Dates: start: 20200228
  39. CLONAZEPAM. [Concomitant]
     Active Substance: CLONAZEPAM
     Indication: SEIZURE
     Dosage: 1 MILLIGRAM, QD, AM AND HS 1/2 TAB
     Route: 048
     Dates: start: 20201013
  40. VIMPAT [Concomitant]
     Active Substance: LACOSAMIDE
     Indication: SEIZURE
     Dosage: 200 MILLIGRAM, BID, 7AM, HS, TABLET
     Route: 048
     Dates: start: 20150824
  41. ATIVAN [Concomitant]
     Active Substance: LORAZEPAM
     Indication: SEIZURE
     Dosage: 1 MILLIGRAM, PER PROTOCOL, BID, PRN, 2 TABLETS
     Route: 048
     Dates: start: 20200228
  42. BENADRYL [Concomitant]
     Active Substance: DIPHENHYDRAMINE HYDROCHLORIDE
     Indication: HYPERSENSITIVITY
     Dosage: 25 MILLIGRAM, QHS, PRN, 1 TABLET
     Route: 048
     Dates: start: 20150824
  43. NASOGEL [Concomitant]
     Indication: EPISTAXIS
  44. TINACTIN [Concomitant]
     Active Substance: TOLNAFTATE
     Indication: TINEA PEDIS
     Dosage: UNK,CREAM, 1%, BID, PRN
     Route: 061
     Dates: start: 20160902

REACTIONS (8)
  - Balance disorder [Recovered/Resolved]
  - Vision blurred [Recovered/Resolved]
  - Nystagmus [Recovering/Resolving]
  - Dysarthria [Recovered/Resolved]
  - Diplopia [Recovered/Resolved]
  - Slow speech [Recovered/Resolved]
  - Aphasia [Recovered/Resolved]
  - Reading disorder [Recovered/Resolved]

NARRATIVE: CASE EVENT DATE: 20210520
